FAERS Safety Report 9979834 (Version 5)
Quarter: 2014Q2

REPORT INFORMATION
  Report Type: Report from Study
  Country: JP (occurrence: JP)
  Receive Date: 20140307
  Receipt Date: 20140520
  Transmission Date: 20141212
  Serious: Yes (Death, Life-Threatening)
  Sender: FDA-Public Use
  Company Number: JP-PFIZER INC-2014061228

PATIENT
  Age: 41 Year
  Sex: Female
  Weight: 49 kg

DRUGS (7)
  1. XALKORI [Suspect]
     Indication: NON-SMALL CELL LUNG CANCER
     Dosage: 250 MG, 2X/DAY
     Route: 048
     Dates: start: 20130820
  2. OXYCONTIN [Concomitant]
     Dosage: 5 MG, 2X/DAY
     Route: 048
     Dates: start: 20130820, end: 20130824
  3. LOXOPROFEN [Concomitant]
     Dosage: 60 MG, 3X/DAY
     Route: 048
     Dates: start: 20130820, end: 20130824
  4. MAGLAX [Concomitant]
     Dosage: 1.8 G, 3X/DAY
     Route: 048
     Dates: start: 20130820, end: 20130824
  5. FUROSEMIDE [Concomitant]
     Dosage: 40 MG, 1X/DAY
     Route: 048
     Dates: start: 20130820, end: 20130824
  6. MUCOSTA [Concomitant]
     Dosage: 100 MG, 3X/DAY
     Route: 048
     Dates: start: 20130820, end: 20130824
  7. BFLUID [Concomitant]
     Dosage: 500 ML, 1X/DAY
     Route: 041
     Dates: start: 20130820, end: 20130822

REACTIONS (5)
  - Aspartate aminotransferase increased [Recovering/Resolving]
  - Alanine aminotransferase increased [Recovering/Resolving]
  - Tumour lysis syndrome [Not Recovered/Not Resolved]
  - Disease progression [Fatal]
  - Non-small cell lung cancer [Fatal]
